FAERS Safety Report 7000475-8 (Version None)
Quarter: 2010Q3

REPORT INFORMATION
  Report Type: 
  Country: None (occurrence: None)
  Receive Date: 20100920
  Receipt Date: 20100910
  Transmission Date: 20110219
  Serious: Yes (Other)
  Sender: FDA-Public Use
  Company Number: US-MYLANLABS-2010S1016879

PATIENT
  Age: 81 Year
  Sex: Male

DRUGS (14)
  1. FENTANYL CITRATE [Suspect]
     Indication: BACK PAIN
     Route: 062
     Dates: start: 20100818
  2. COREG [Concomitant]
     Dosage: 1/2 TAB
  3. LASIX [Concomitant]
  4. PLAVIX [Concomitant]
  5. POTASSIUM [Concomitant]
  6. SYNTHROID [Concomitant]
  7. CHOLESTYRAMINE [Concomitant]
  8. LANOXIN [Concomitant]
  9. NIACIN [Concomitant]
  10. ASPIRIN [Concomitant]
  11. VYTORIN [Concomitant]
  12. DIOVAN [Concomitant]
  13. FLOMAX [Concomitant]
  14. WELCHOL [Concomitant]

REACTIONS (1)
  - DYSPHAGIA [None]
